FAERS Safety Report 25454316 (Version 1)
Quarter: 2025Q2

REPORT INFORMATION
  Report Type: Spontaneous
  Country: PL (occurrence: PL)
  Receive Date: 20250619
  Receipt Date: 20250619
  Transmission Date: 20250716
  Serious: Yes (Hospitalization, Disabling, Other)
  Sender: SANDOZ
  Company Number: PL-SANDOZ-SDZ2021PL001243

PATIENT
  Age: 83 Year
  Sex: Female
  Weight: 91 kg

DRUGS (188)
  1. BENSERAZIDE HYDROCHLORIDE\LEVODOPA [Suspect]
     Active Substance: BENSERAZIDE HYDROCHLORIDE\LEVODOPA
     Indication: Product used for unknown indication
     Route: 065
  2. DABIGATRAN [Suspect]
     Active Substance: DABIGATRAN
     Indication: Product used for unknown indication
     Dosage: 110 MG, BID/DRUG LIST AFTER MODIFICATION (0.5DAY)
     Route: 065
  3. DABIGATRAN [Suspect]
     Active Substance: DABIGATRAN
     Dosage: 110 MG, BID/DRUG LIST AT THE ADMISSION
     Route: 065
  4. DABIGATRAN [Suspect]
     Active Substance: DABIGATRAN
     Dosage: 1-0-1
     Route: 048
  5. DENOSUMAB [Suspect]
     Active Substance: DENOSUMAB
     Indication: Product used for unknown indication
     Route: 065
  6. DONEPEZIL [Suspect]
     Active Substance: DONEPEZIL
     Indication: Product used for unknown indication
     Route: 065
  7. HYDROXYZINE [Suspect]
     Active Substance: HYDROXYZINE HYDROCHLORIDE
     Indication: Product used for unknown indication
     Dosage: 40 MG, QD/1-0-0/25 MG, AD HOC, USUALLY
     Route: 065
  8. IMDUR [Suspect]
     Active Substance: ISOSORBIDE MONONITRATE
     Indication: Product used for unknown indication
     Route: 065
  9. BENSERAZIDE\LEVODOPA [Suspect]
     Active Substance: BENSERAZIDE\LEVODOPA
     Indication: Product used for unknown indication
     Dosage: 187.5 MG, QD (62.5 MG, TID)
     Route: 065
  10. QUETIAPINE [Suspect]
     Active Substance: QUETIAPINE
     Indication: Product used for unknown indication
     Dosage: 25 MG, QD
     Route: 065
  11. TORSEMIDE [Suspect]
     Active Substance: TORSEMIDE
     Indication: Product used for unknown indication
     Dosage: 5 MG, QD
     Route: 065
  12. VITAMIN D3 [Suspect]
     Active Substance: CHOLECALCIFEROL
     Indication: Product used for unknown indication
     Route: 065
  13. ACARBOSE [Concomitant]
     Active Substance: ACARBOSE
     Indication: Hyperglycaemia
     Dosage: 3.000DF QD
     Route: 048
  14. ALLOPURINOL [Concomitant]
     Active Substance: ALLOPURINOL
     Indication: Product used for unknown indication
     Route: 065
  15. ALLOPURINOL [Concomitant]
     Active Substance: ALLOPURINOL
     Indication: Product used for unknown indication
     Route: 065
  16. ALPRAZOLAM [Concomitant]
     Active Substance: ALPRAZOLAM
     Indication: Product used for unknown indication
     Route: 065
  17. AMLODIPINE BESYLATE [Concomitant]
     Active Substance: AMLODIPINE BESYLATE
     Indication: Hypertension
     Dosage: 1 DOSAGE FORM, QD
     Route: 065
  18. ATORVASTATIN [Concomitant]
     Active Substance: ATORVASTATIN
     Indication: Product used for unknown indication
     Route: 065
  19. BETAHISTINE [Concomitant]
     Active Substance: BETAHISTINE
     Indication: Product used for unknown indication
     Route: 065
  20. CITALOPRAM [Concomitant]
     Active Substance: CITALOPRAM
     Indication: Product used for unknown indication
     Route: 065
  21. DABIGATRAN [Concomitant]
     Active Substance: DABIGATRAN
     Indication: Product used for unknown indication
     Route: 065
  22. FUROSEMIDE [Concomitant]
     Active Substance: FUROSEMIDE
     Indication: Product used for unknown indication
     Route: 065
  23. GLICLAZIDE [Concomitant]
     Active Substance: GLICLAZIDE
     Dosage: 60 MG, TID/1-1-1
     Route: 065
  24. GLICLAZIDE [Concomitant]
     Active Substance: GLICLAZIDE
     Indication: Product used for unknown indication
     Route: 065
  25. DEXTROSE [Concomitant]
     Active Substance: DEXTROSE MONOHYDRATE
     Route: 065
  26. DEXTROSE [Concomitant]
     Active Substance: DEXTROSE MONOHYDRATE
     Indication: Product used for unknown indication
     Route: 065
  27. HYDROCHLOROTHIAZIDE [Concomitant]
     Active Substance: HYDROCHLOROTHIAZIDE
     Indication: Product used for unknown indication
     Route: 065
  28. HYDROCHLOROTHIAZIDE [Concomitant]
     Active Substance: HYDROCHLOROTHIAZIDE
     Indication: Product used for unknown indication
     Route: 065
  29. HYDROCHLOROTHIAZIDE [Concomitant]
     Active Substance: HYDROCHLOROTHIAZIDE
     Indication: Product used for unknown indication
     Route: 065
  30. INSULIN NOS [Concomitant]
     Active Substance: INSULIN NOS
     Indication: Blood glucose abnormal
     Route: 065
  31. INSULIN NOS [Concomitant]
     Active Substance: INSULIN NOS
     Route: 065
  32. ISOSORBIDE MONONITRATE [Concomitant]
     Active Substance: ISOSORBIDE MONONITRATE
     Indication: Product used for unknown indication
     Route: 065
  33. Lan di [Concomitant]
     Indication: Hypertension
     Dosage: 1 DF QD
     Route: 048
  34. Lan di [Concomitant]
     Indication: Product used for unknown indication
     Route: 065
  35. LEVOTHYROXINE [Concomitant]
     Active Substance: LEVOTHYROXINE
     Indication: Product used for unknown indication
     Route: 065
  36. METFORMIN [Concomitant]
     Active Substance: METFORMIN HYDROCHLORIDE
     Indication: Product used for unknown indication
     Route: 065
  37. METOPROLOL [Concomitant]
     Active Substance: METOPROLOL
     Indication: Product used for unknown indication
     Route: 065
  38. OMEPRAZOLE [Concomitant]
     Active Substance: OMEPRAZOLE
     Indication: Product used for unknown indication
     Route: 065
  39. ACETAMINOPHEN [Concomitant]
     Active Substance: ACETAMINOPHEN
     Indication: Product used for unknown indication
     Route: 065
  40. Q-Mind [Concomitant]
     Indication: Product used for unknown indication
     Dosage: 25 MG, QD/0-0-1
     Route: 065
  41. QUETIAPINE [Concomitant]
     Active Substance: QUETIAPINE
     Indication: Product used for unknown indication
     Dosage: 25 MG, QD/ 0-0-1
     Route: 065
  42. QUETIAPINE [Concomitant]
     Active Substance: QUETIAPINE
     Indication: Product used for unknown indication
     Dosage: 25 MG, QD/0-0-1
     Route: 065
  43. RAMIPRIL [Concomitant]
     Active Substance: RAMIPRIL
     Indication: Product used for unknown indication
     Route: 065
  44. RUFLOXACIN [Concomitant]
     Active Substance: RUFLOXACIN
     Indication: Nasopharyngitis
     Dosage: 1 DOSAGE FORM, BID
     Route: 048
  45. ALBUTEROL [Concomitant]
     Active Substance: ALBUTEROL
     Indication: Product used for unknown indication
     Route: 065
  46. ALBUTEROL [Concomitant]
     Active Substance: ALBUTEROL
     Indication: Product used for unknown indication
     Route: 065
  47. SPIRONOLACTONE [Concomitant]
     Active Substance: SPIRONOLACTONE
     Indication: Product used for unknown indication
     Route: 065
  48. HYDROTALCITE [Concomitant]
     Active Substance: HYDROTALCITE
     Indication: Abdominal pain upper
     Dosage: 1
     Route: 065
  49. HYDROTALCITE [Concomitant]
     Active Substance: HYDROTALCITE
     Dosage: 1
     Route: 065
  50. TORSEMIDE [Concomitant]
     Active Substance: TORSEMIDE
     Indication: Product used for unknown indication
     Dosage: 5 MG, QD
     Route: 065
  51. TRAMADOL HYDROCHLORIDE [Concomitant]
     Active Substance: TRAMADOL HYDROCHLORIDE
     Route: 065
  52. TRAMADOL HYDROCHLORIDE [Concomitant]
     Active Substance: TRAMADOL HYDROCHLORIDE
     Indication: Product used for unknown indication
     Route: 065
  53. VORTIOXETINE [Concomitant]
     Active Substance: VORTIOXETINE
     Indication: Product used for unknown indication
     Dosage: 10 MG, QD/0-0-1
     Route: 065
  54. VORTIOXETINE [Concomitant]
     Active Substance: VORTIOXETINE
     Dosage: 10 MG, QD/0-0-1
     Route: 065
  55. ZOLPIDEM [Concomitant]
     Active Substance: ZOLPIDEM TARTRATE
     Indication: Product used for unknown indication
     Route: 065
  56. ALLOPURINOL [Interacting]
     Active Substance: ALLOPURINOL
     Indication: Product used for unknown indication
     Dosage: 100 MG, QD (1-0-0), IN EVENING
     Route: 048
  57. ATORVASTATIN [Interacting]
     Active Substance: ATORVASTATIN
     Dosage: 1 DF, QD
     Route: 065
  58. ATORVASTATIN [Interacting]
     Active Substance: ATORVASTATIN
     Indication: Product used for unknown indication
     Dosage: 20 MG, QD (0-0-1)
     Route: 048
  59. ATORVASTATIN [Interacting]
     Active Substance: ATORVASTATIN
     Route: 048
  60. ATORVASTATIN [Interacting]
     Active Substance: ATORVASTATIN
     Route: 065
  61. ALPRAZOLAM [Interacting]
     Active Substance: ALPRAZOLAM
     Dosage: 0.5 MG, QD, IF NEEDED
     Route: 048
  62. ALPRAZOLAM [Interacting]
     Active Substance: ALPRAZOLAM
     Dosage: ON DEMAND, TYPICALLY 2 X/24 H
     Route: 048
  63. ALPRAZOLAM [Interacting]
     Active Substance: ALPRAZOLAM
     Dosage: 1 MG, QD
     Route: 065
  64. ALPRAZOLAM [Interacting]
     Active Substance: ALPRAZOLAM
     Dosage: 2 DF, QD
     Route: 065
  65. ALPRAZOLAM [Interacting]
     Active Substance: ALPRAZOLAM
     Dosage: 2 DF, QD, QD/0,5 MG, ADHOC, USUALLY
     Route: 065
  66. ALPRAZOLAM [Interacting]
     Active Substance: ALPRAZOLAM
     Indication: Depression
     Dosage: 2 DF, QD/0.5 MG, 12 HRS (AS NECESSARY)
     Route: 065
  67. ALPRAZOLAM [Interacting]
     Active Substance: ALPRAZOLAM
     Route: 065
  68. ALPRAZOLAM [Interacting]
     Active Substance: ALPRAZOLAM
     Route: 065
  69. BETAHISTINE [Interacting]
     Active Substance: BETAHISTINE
     Route: 065
  70. BETAHISTINE [Interacting]
     Active Substance: BETAHISTINE
     Dosage: 20 MG, Q12H
     Route: 065
  71. BETAHISTINE [Interacting]
     Active Substance: BETAHISTINE
     Route: 065
  72. BETAHISTINE [Interacting]
     Active Substance: BETAHISTINE
     Indication: Product used for unknown indication
     Route: 065
  73. BETAHISTINE [Interacting]
     Active Substance: BETAHISTINE
     Route: 048
  74. BETAHISTINE HYDROCHLORIDE [Interacting]
     Active Substance: BETAHISTINE HYDROCHLORIDE
     Dosage: 1024 MG, Q24H
     Route: 065
  75. BETAHISTINE HYDROCHLORIDE [Interacting]
     Active Substance: BETAHISTINE HYDROCHLORIDE
     Dosage: 20 MG, Q12H, 40 MG QD
     Route: 048
  76. BETAHISTINE HYDROCHLORIDE [Interacting]
     Active Substance: BETAHISTINE HYDROCHLORIDE
     Indication: Product used for unknown indication
     Dosage: 24 MG, QD (0-1-0)
     Route: 065
  77. CITALOPRAM [Interacting]
     Active Substance: CITALOPRAM
     Dosage: 1 DF, QD, 1-0-0
     Route: 065
  78. CITALOPRAM [Interacting]
     Active Substance: CITALOPRAM
     Indication: Depression
     Dosage: 40 MG, QD (0-0-1), AT ADMISSION
     Route: 048
  79. CITALOPRAM HYDROBROMIDE [Interacting]
     Active Substance: CITALOPRAM HYDROBROMIDE
     Indication: Product used for unknown indication
     Route: 065
  80. CITALOPRAM HYDROBROMIDE [Interacting]
     Active Substance: CITALOPRAM HYDROBROMIDE
     Indication: Product used for unknown indication
  81. DABIGATRAN ETEXILATE [Interacting]
     Active Substance: DABIGATRAN ETEXILATE
     Dosage: 20 MG, Q12H
     Route: 065
  82. DABIGATRAN ETEXILATE [Interacting]
     Active Substance: DABIGATRAN ETEXILATE
     Indication: Product used for unknown indication
     Dosage: 220 MG, QD, 110 MG, BID (1-0-1, AT LEAST FOR 2 YEARS STOPPED)
     Route: 065
  83. DABIGATRAN ETEXILATE [Interacting]
     Active Substance: DABIGATRAN ETEXILATE
     Route: 065
  84. FUROSEMIDE [Interacting]
     Active Substance: FUROSEMIDE
     Indication: Product used for unknown indication
     Dosage: 120MG,QD(40 MG,TID,3DFEVERY2ND D)
     Route: 048
  85. FUROSEMIDE SODIUM [Interacting]
     Active Substance: FUROSEMIDE SODIUM
     Indication: Product used for unknown indication
     Route: 065
  86. GLICLAZIDE [Interacting]
     Active Substance: GLICLAZIDE
     Dosage: 1 DF, Q8H, 3 DOSAGE FORM, QD, 1-1-1 3 DOSAGE FORM, QD, 1-1-1
     Route: 065
  87. GLICLAZIDE [Interacting]
     Active Substance: GLICLAZIDE
     Dosage: 180 MG, QD
     Route: 065
  88. GLICLAZIDE [Interacting]
     Active Substance: GLICLAZIDE
     Indication: Type 2 diabetes mellitus
     Dosage: 60 MG, TID (1-1-1, EXCESSIVE DOSES)
     Route: 048
  89. GLICLAZIDE [Interacting]
     Active Substance: GLICLAZIDE
     Indication: Product used for unknown indication
     Dosage: UNK, Q8H, (0.3 DAY) 1-1-1
     Route: 065
  90. DEXTROSE [Interacting]
     Active Substance: DEXTROSE MONOHYDRATE
     Indication: Product used for unknown indication
     Route: 065
  91. DEXTROSE [Interacting]
     Active Substance: DEXTROSE MONOHYDRATE
     Dosage: 20 MG, Q12H (40 MG DAILY)
     Route: 065
  92. DEXTROSE\NIKETHAMIDE [Interacting]
     Active Substance: DEXTROSE\NIKETHAMIDE
     Dosage: 20 MG, Q12H
     Route: 065
  93. DEXTROSE\NIKETHAMIDE [Interacting]
     Active Substance: DEXTROSE\NIKETHAMIDE
     Dosage: 20 MG, Q12H
     Route: 065
  94. DEXTROSE\NIKETHAMIDE [Interacting]
     Active Substance: DEXTROSE\NIKETHAMIDE
     Route: 065
  95. DEXTROSE\NIKETHAMIDE [Interacting]
     Active Substance: DEXTROSE\NIKETHAMIDE
     Route: 065
  96. DEXTROSE\NIKETHAMIDE [Interacting]
     Active Substance: DEXTROSE\NIKETHAMIDE
     Indication: Product used for unknown indication
     Route: 065
  97. HYDROCHLOROTHIAZIDE [Interacting]
     Active Substance: HYDROCHLOROTHIAZIDE
     Indication: Product used for unknown indication
     Dosage: 25 MG,QD (1-0-0),IN MORNING
     Route: 048
  98. HYDROXYZINE [Interacting]
     Active Substance: HYDROXYZINE HYDROCHLORIDE
     Dosage: 2 DF, QD
     Route: 065
  99. HYDROXYZINE [Interacting]
     Active Substance: HYDROXYZINE HYDROCHLORIDE
     Dosage: 25 MG, QD
     Route: 048
  100. HYDROXYZINE [Interacting]
     Active Substance: HYDROXYZINE HYDROCHLORIDE
     Dosage: 25 MG, Q12H, DOSAGE SCHEDULE: ON DEMAND, TYPICALLY 2 X/24 H
     Route: 065
  101. HYDROXYZINE [Interacting]
     Active Substance: HYDROXYZINE HYDROCHLORIDE
     Indication: Product used for unknown indication
     Route: 065
  102. HYDROXYZINE [Interacting]
     Active Substance: HYDROXYZINE HYDROCHLORIDE
     Route: 065
  103. HYDROXYZINE [Interacting]
     Active Substance: HYDROXYZINE HYDROCHLORIDE
     Route: 065
  104. HYDROXYZINE [Interacting]
     Active Substance: HYDROXYZINE HYDROCHLORIDE
     Dosage: UNK, QD
     Route: 065
  105. HYDROXYZINE HYDROCHLORIDE [Interacting]
     Active Substance: HYDROXYZINE HYDROCHLORIDE
     Indication: Product used for unknown indication
     Dosage: 25 MG, QD (AVG 2X2 QD)
     Route: 065
  106. HYDROXYZINE HYDROCHLORIDE [Interacting]
     Active Substance: HYDROXYZINE HYDROCHLORIDE
     Dosage: 40 MG, QD (1-0-0)
     Route: 065
  107. HYDROXYZINE HYDROCHLORIDE [Interacting]
     Active Substance: HYDROXYZINE HYDROCHLORIDE
     Dosage: 50 MG, QD (25 MG, AS NEEDED, AV. TWICE DAILY
     Route: 065
  108. ISOSORBIDE MONONITRATE [Interacting]
     Active Substance: ISOSORBIDE MONONITRATE
     Indication: Coronary artery disease
     Dosage: 100MG,QD(50 MG BID)(ADHOC,AVG1-2/1-2X/24H)
     Route: 048
  109. ISOSORBIDE MONONITRATE [Interacting]
     Active Substance: ISOSORBIDE MONONITRATE
     Route: 065
  110. ISOSORBIDE MONONITRATE [Interacting]
     Active Substance: ISOSORBIDE MONONITRATE
     Route: 065
  111. ISOSORBIDE MONONITRATE [Interacting]
     Active Substance: ISOSORBIDE MONONITRATE
     Dosage: UNK, BID
     Route: 065
  112. POTASSIUM CHLORIDE [Interacting]
     Active Substance: POTASSIUM CHLORIDE
     Dosage: 20 MG, Q12H (40 MG, QD)
     Route: 065
  113. POTASSIUM CHLORIDE [Interacting]
     Active Substance: POTASSIUM CHLORIDE
     Indication: Product used for unknown indication
     Route: 065
  114. POTASSIUM CHLORIDE [Interacting]
     Active Substance: POTASSIUM CHLORIDE
     Dosage: 782 MG, QD (391 MG, BID)
     Route: 065
  115. LEVOTHYROXINE SODIUM [Interacting]
     Active Substance: LEVOTHYROXINE SODIUM
     Route: 048
  116. LEVOTHYROXINE SODIUM [Interacting]
     Active Substance: LEVOTHYROXINE SODIUM
     Dosage: 100 MG, 1-0-1
     Route: 065
  117. LEVOTHYROXINE SODIUM [Interacting]
     Active Substance: LEVOTHYROXINE SODIUM
     Indication: Product used for unknown indication
     Dosage: 100 UG, QD (1-0-0) AT LEAST FOR 2 YRS
     Route: 065
  118. LEVOTHYROXINE SODIUM [Interacting]
     Active Substance: LEVOTHYROXINE SODIUM
     Route: 065
  119. LEVOTHYROXINE SODIUM [Interacting]
     Active Substance: LEVOTHYROXINE SODIUM
     Dosage: 20 MG, Q12H
     Route: 065
  120. LEVOTHYROXINE SODIUM [Interacting]
     Active Substance: LEVOTHYROXINE SODIUM
     Dosage: 25 MG, Q24H
     Route: 065
  121. LEVOTHYROXINE SODIUM [Interacting]
     Active Substance: LEVOTHYROXINE SODIUM
     Indication: Product used for unknown indication
     Route: 048
  122. LEVOTHYROXINE SODIUM [Interacting]
     Active Substance: LEVOTHYROXINE SODIUM
     Dosage: UNK, QD
     Route: 065
  123. LEVOTHYROXINE SODIUM [Interacting]
     Active Substance: LEVOTHYROXINE SODIUM
     Dosage: UNK, BID
     Route: 065
  124. METFORMIN [Interacting]
     Active Substance: METFORMIN HYDROCHLORIDE
     Indication: Type 2 diabetes mellitus
     Route: 048
  125. METOPROLOL [Interacting]
     Active Substance: METOPROLOL
     Dosage: 1 DF, Q12H, 1-0-1
     Route: 065
  126. METOPROLOL [Interacting]
     Active Substance: METOPROLOL
     Dosage: 50 MG, BID (1-0-1/2, (DOSE REDUCE); AT LEAST FOR 2 YEARS100 MG QD)
     Route: 048
  127. METOPROLOL [Interacting]
     Active Substance: METOPROLOL
     Route: 048
  128. METOPROLOL [Interacting]
     Active Substance: METOPROLOL
     Indication: Hypertension
     Dosage: 50 MG, Q12H, DOSAGE SCHEDULE: 1-0-1
     Route: 048
  129. METOCLOPRAMIDE [Interacting]
     Active Substance: METOCLOPRAMIDE
     Route: 065
  130. METOCLOPRAMIDE [Interacting]
     Active Substance: METOCLOPRAMIDE
     Indication: Constipation
     Route: 065
  131. METOCLOPRAMIDE [Interacting]
     Active Substance: METOCLOPRAMIDE
     Route: 065
  132. METOCLOPRAMIDE [Interacting]
     Active Substance: METOCLOPRAMIDE
     Route: 065
  133. METOCLOPRAMIDE [Interacting]
     Active Substance: METOCLOPRAMIDE
     Route: 065
  134. METOCLOPRAMIDE [Interacting]
     Active Substance: METOCLOPRAMIDE
     Indication: Constipation
     Route: 065
  135. METOCLOPRAMIDE [Interacting]
     Active Substance: METOCLOPRAMIDE
     Route: 048
  136. METOCLOPRAMIDE [Interacting]
     Active Substance: METOCLOPRAMIDE
     Indication: Product used for unknown indication
     Route: 065
  137. METOCLOPRAMIDE [Interacting]
     Active Substance: METOCLOPRAMIDE
     Route: 065
  138. METOCLOPRAMIDE HYDROCHLORIDE [Interacting]
     Active Substance: METOCLOPRAMIDE HYDROCHLORIDE
     Indication: Constipation
     Route: 065
  139. METOCLOPRAMIDE HYDROCHLORIDE [Interacting]
     Active Substance: METOCLOPRAMIDE HYDROCHLORIDE
     Route: 065
  140. NIKETHAMIDE [Interacting]
     Active Substance: NIKETHAMIDE
     Indication: Product used for unknown indication
     Route: 065
  141. NIKETHAMIDE [Interacting]
     Active Substance: NIKETHAMIDE
     Dosage: 20 MG, Q12H
     Route: 065
  142. NIKETHAMIDE [Interacting]
     Active Substance: NIKETHAMIDE
     Indication: Product used for unknown indication
     Route: 065
  143. OMEPRAZOLE [Interacting]
     Active Substance: OMEPRAZOLE
     Indication: Product used for unknown indication
     Dosage: 1-1-0
     Route: 065
  144. OMEPRAZOLE [Interacting]
     Active Substance: OMEPRAZOLE
     Indication: Product used for unknown indication
     Dosage: 1-1-0
     Route: 048
  145. OMEPRAZOLE [Interacting]
     Active Substance: OMEPRAZOLE
     Indication: Product used for unknown indication
     Dosage: 200 MG, QD
     Route: 065
  146. OMEPRAZOLE [Interacting]
     Active Substance: OMEPRAZOLE
     Indication: Product used for unknown indication
     Dosage: 40 MG, QD
     Route: 065
  147. OMEPRAZOLE MAGNESIUM [Interacting]
     Active Substance: OMEPRAZOLE MAGNESIUM
     Indication: Product used for unknown indication
     Route: 048
  148. OMEPRAZOLE [Interacting]
     Active Substance: OMEPRAZOLE
     Dosage: 100 MG, BID 1-1-0
     Route: 048
  149. OMEPRAZOLE [Interacting]
     Active Substance: OMEPRAZOLE
     Indication: Product used for unknown indication
     Dosage: 20 MG, BID (1-1-0)
     Route: 048
  150. ACETAMINOPHEN [Interacting]
     Active Substance: ACETAMINOPHEN
     Dosage: 1 DF, QD
     Route: 065
  151. ACETAMINOPHEN [Interacting]
     Active Substance: ACETAMINOPHEN
     Indication: Product used for unknown indication
     Dosage: 1000 MG, QD (500 MG, BID/1-0-1)
     Route: 048
  152. ACETAMINOPHEN [Interacting]
     Active Substance: ACETAMINOPHEN
     Dosage: 20 MG, Q12H
     Route: 065
  153. ACETAMINOPHEN [Interacting]
     Active Substance: ACETAMINOPHEN
     Dosage: 500 MG, QD (0-0-1), IN THE EVENING
     Route: 048
  154. ACETAMINOPHEN [Interacting]
     Active Substance: ACETAMINOPHEN
     Dosage: 500 MG, Q12H, (0.5 DAY) 1-0-1
     Route: 065
  155. POTASSIUM CHLORIDE [Interacting]
     Active Substance: POTASSIUM CHLORIDE
     Indication: Product used for unknown indication
     Dosage: 1 DF EVERY 2 DAYS/391 MG K
     Route: 065
  156. POTASSIUM CHLORIDE [Interacting]
     Active Substance: POTASSIUM CHLORIDE
     Route: 048
  157. POTASSIUM CHLORIDE [Interacting]
     Active Substance: POTASSIUM CHLORIDE
     Dosage: 20 MG, Q12H
     Route: 065
  158. POTASSIUM CHLORIDE [Interacting]
     Active Substance: POTASSIUM CHLORIDE
     Dosage: 20 MG, Q12H
     Route: 065
  159. POTASSIUM CHLORIDE [Interacting]
     Active Substance: POTASSIUM CHLORIDE
     Dosage: 391 MG, Q12H
     Route: 048
  160. POTASSIUM CHLORIDE [Interacting]
     Active Substance: POTASSIUM CHLORIDE
     Route: 065
  161. POTASSIUM CHLORIDE\RIBOFLAVIN 5^-PHOSPHATE SODIUM [Interacting]
     Active Substance: POTASSIUM CHLORIDE\RIBOFLAVIN 5^-PHOSPHATE SODIUM
     Indication: Product used for unknown indication
     Route: 065
  162. RAMIPRIL [Interacting]
     Active Substance: RAMIPRIL
     Indication: Product used for unknown indication
     Dosage: 1 DF, QD
     Route: 065
  163. RAMIPRIL [Interacting]
     Active Substance: RAMIPRIL
     Indication: Product used for unknown indication
     Dosage: 1 DOSAGE FORM, QD
     Route: 065
  164. RAMIPRIL [Interacting]
     Active Substance: RAMIPRIL
     Indication: Product used for unknown indication
     Dosage: 100 MG, QD (50 MG Q12H)
     Route: 048
  165. RAMIPRIL [Interacting]
     Active Substance: RAMIPRIL
     Indication: Cardiac failure
     Dosage: 5 MG, QD (1-0-0, AT LEAST FOR 2 YEARS, STOPPED)
     Route: 048
  166. ALBUTEROL SULFATE [Interacting]
     Active Substance: ALBUTEROL SULFATE
     Route: 048
  167. ALBUTEROL SULFATE [Interacting]
     Active Substance: ALBUTEROL SULFATE
     Indication: Product used for unknown indication
     Route: 065
  168. ALBUTEROL SULFATE [Interacting]
     Active Substance: ALBUTEROL SULFATE
     Dosage: 20 MG, BID
     Route: 065
  169. SPIRONOLACTONE [Interacting]
     Active Substance: SPIRONOLACTONE
     Indication: Product used for unknown indication
     Dosage: 100 MG,QD(0-1-0,ATLEAST FOR 2 YEARS)
     Route: 065
  170. TRAMADOL [Interacting]
     Active Substance: TRAMADOL
     Indication: Pain
     Dosage: 100 MG, Q12H
     Route: 065
  171. TRAMADOL [Interacting]
     Active Substance: TRAMADOL
     Route: 048
  172. TRAMADOL [Interacting]
     Active Substance: TRAMADOL
     Dosage: 200 MG, QD
     Route: 048
  173. TRAMADOL [Interacting]
     Active Substance: TRAMADOL
     Route: 065
  174. TRAMADOL [Interacting]
     Active Substance: TRAMADOL
     Indication: Product used for unknown indication
     Route: 065
  175. TRAMADOL [Interacting]
     Active Substance: TRAMADOL
     Route: 065
  176. TRAMADOL [Interacting]
     Active Substance: TRAMADOL
     Route: 065
  177. TRAMADOL [Interacting]
     Active Substance: TRAMADOL
     Indication: Product used for unknown indication
  178. TRAMADOL [Interacting]
     Active Substance: TRAMADOL
     Indication: Product used for unknown indication
  179. TRAMADOL HYDROCHLORIDE [Interacting]
     Active Substance: TRAMADOL HYDROCHLORIDE
     Indication: Pain
     Route: 048
  180. TRAMADOL HYDROCHLORIDE [Interacting]
     Active Substance: TRAMADOL HYDROCHLORIDE
     Dosage: 20 MG, Q12H
     Route: 048
  181. TRAMADOL HYDROCHLORIDE [Interacting]
     Active Substance: TRAMADOL HYDROCHLORIDE
     Route: 048
  182. TRAMADOL HYDROCHLORIDE [Interacting]
     Active Substance: TRAMADOL HYDROCHLORIDE
     Route: 065
  183. ZOLPIDEM [Interacting]
     Active Substance: ZOLPIDEM TARTRATE
     Indication: Product used for unknown indication
     Dosage: 1 DF, QD
     Route: 065
  184. ZOLPIDEM [Interacting]
     Active Substance: ZOLPIDEM TARTRATE
     Indication: Product used for unknown indication
     Dosage: 10 MG, 1X PER DAY, (0-0-1 )
     Route: 065
  185. ZOLPIDEM [Interacting]
     Active Substance: ZOLPIDEM TARTRATE
     Indication: Product used for unknown indication
     Dosage: 10 MG, QD
     Route: 048
  186. ZOLPIDEM [Interacting]
     Active Substance: ZOLPIDEM TARTRATE
     Dosage: UNK, QD, 0-0-1
     Route: 065
  187. ZOLPIDEM [Interacting]
     Active Substance: ZOLPIDEM TARTRATE
     Indication: Depression
     Dosage: 100 MG, QD/0-0-1
     Route: 065
  188. ZOLPIDEM [Interacting]
     Active Substance: ZOLPIDEM TARTRATE
     Indication: Depression
     Dosage: 100 MG, QD (0-0-1, 1 DF)
     Route: 048

REACTIONS (13)
  - Diabetes mellitus inadequate control [Unknown]
  - Mobility decreased [Recovering/Resolving]
  - Hyponatraemia [Unknown]
  - Depression [Unknown]
  - Hypotension [Recovering/Resolving]
  - Dysuria [Unknown]
  - Atrioventricular block first degree [Recovering/Resolving]
  - Gastric polyps [Unknown]
  - Hyperkalaemia [Unknown]
  - Hiatus hernia [Unknown]
  - Hyperglycaemia [Unknown]
  - Peripheral circulatory failure [Unknown]
  - Motor dysfunction [Recovering/Resolving]

NARRATIVE: CASE EVENT DATE: 20210101
